FAERS Safety Report 17420084 (Version 2)
Quarter: 2020Q1

REPORT INFORMATION
  Report Type: Spontaneous
  Country: US (occurrence: US)
  Receive Date: 20200214
  Receipt Date: 20200227
  Transmission Date: 20200409
  Serious: No
  Sender: FDA-Public Use
  Company Number: US-PFIZER INC-2020063447

PATIENT
  Age: 67 Year
  Sex: Female
  Weight: 58.6 kg

DRUGS (2)
  1. METHOTREXATE SODIUM. [Suspect]
     Active Substance: METHOTREXATE SODIUM
  2. CELEBREX [Suspect]
     Active Substance: CELECOXIB

REACTIONS (1)
  - Drug ineffective [Unknown]
